FAERS Safety Report 13813252 (Version 1)
Quarter: 2017Q3

REPORT INFORMATION
  Report Type: Spontaneous
  Country: FR (occurrence: FR)
  Receive Date: 20170729
  Receipt Date: 20170729
  Transmission Date: 20171127
  Serious: Yes (Life-Threatening, Congenital Anomaly)
  Sender: FDA-Public Use
  Company Number: FR-009507513-1707FRA007841

PATIENT
  Sex: Male
  Weight: 2.08 kg

DRUGS (5)
  1. ORGALUTRAN [Suspect]
     Active Substance: GANIRELIX ACETATE
     Dosage: STRENGTH: 0.25MG/0.5ML, 1 DF, QD
     Route: 064
     Dates: start: 201511, end: 201512
  2. DIETARY SUPPLEMENT (UNSPECIFIED) [Suspect]
     Active Substance: DIETARY SUPPLEMENT
     Dosage: UNK UNK, QD
     Dates: start: 201512, end: 201603
  3. GONAL-F [Suspect]
     Active Substance: FOLLITROPIN
     Dosage: UNK
     Route: 064
     Dates: start: 201511, end: 201512
  4. OVITRELLE [Suspect]
     Active Substance: CHORIOGONADOTROPIN ALFA
     Dosage: 1 DF, QD
     Route: 064
     Dates: start: 201512, end: 201512
  5. SPASFON (PHLOROGLUCINOL, TRIMETHYLPHLOROGLUCINOL) [Suspect]
     Active Substance: PHLOROGLUCINOL\1,3,5-TRIMETHOXYBENZENE
     Dosage: UNK
     Route: 064
     Dates: start: 201505

REACTIONS (2)
  - Talipes [Unknown]
  - Pulmonary artery atresia [Recovered/Resolved]
